FAERS Safety Report 22076983 (Version 1)
Quarter: 2023Q1

REPORT INFORMATION
  Report Type: Other
  Country: JP (occurrence: None)
  Receive Date: 20230309
  Receipt Date: 20230309
  Transmission Date: 20230418
  Serious: Yes (Other)
  Sender: FDA-Public Use
  Company Number: JP-ROCHE-3299507

PATIENT
  Age: 49 Year
  Sex: Female
  Weight: 64 kg

DRUGS (6)
  1. ALECTINIB [Suspect]
     Active Substance: ALECTINIB
     Indication: Squamous cell carcinoma of lung
     Route: 065
  2. BRIGATINIB [Concomitant]
     Active Substance: BRIGATINIB
     Indication: Squamous cell carcinoma of lung
     Dosage: FOR FIRST 7 DAYS
     Route: 065
  3. BRIGATINIB [Concomitant]
     Active Substance: BRIGATINIB
     Indication: Squamous cell carcinoma of lung
     Route: 065
  4. LORLATINIB [Concomitant]
     Active Substance: LORLATINIB
     Indication: Squamous cell carcinoma of lung
     Route: 065
  5. NIVOLUMAB [Concomitant]
     Active Substance: NIVOLUMAB
     Indication: Squamous cell carcinoma of lung
     Route: 065
  6. IPILIMUMAB [Concomitant]
     Active Substance: IPILIMUMAB
     Indication: Squamous cell carcinoma of lung
     Route: 065

REACTIONS (3)
  - Disease progression [Unknown]
  - Metastases to central nervous system [Unknown]
  - Lymphadenopathy mediastinal [Unknown]
